FAERS Safety Report 5068364-6 (Version None)
Quarter: 2006Q3

REPORT INFORMATION
  Report Type: 
  Country: None (occurrence: None)
  Receive Date: 20060802
  Receipt Date: 20050822
  Transmission Date: 20061208
  Serious: No
  Sender: FDA-Public Use
  Company Number: US-BRISTOL-MYERS SQUIBB COMPANY-13085725

PATIENT
  Age: 77 Year
  Sex: Male
  Weight: 83 kg

DRUGS (1)
  1. COUMADIN [Suspect]
     Dates: start: 20050201

REACTIONS (2)
  - HAEMORRHAGE [None]
  - INCREASED TENDENCY TO BRUISE [None]
